FAERS Safety Report 15192716 (Version 2)
Quarter: 2018Q3

REPORT INFORMATION
  Report Type: Spontaneous
  Country: DE (occurrence: DE)
  Receive Date: 20180725
  Receipt Date: 20180806
  Transmission Date: 20181010
  Serious: Yes (Hospitalization)
  Sender: FDA-Public Use
  Company Number: DE-BIOGEN-2018BI00612602

PATIENT
  Sex: Female

DRUGS (5)
  1. LIORESAL [Concomitant]
     Active Substance: BACLOFEN
     Indication: PAIN
     Route: 065
  2. IMUREK [Concomitant]
     Active Substance: AZATHIOPRINE
     Indication: PAIN
     Route: 065
  3. SYNTESTAN [Concomitant]
     Active Substance: CLOPREDNOL
     Indication: PAIN
     Route: 065
  4. TRAMADOL. [Concomitant]
     Active Substance: TRAMADOL
     Indication: PAIN
     Route: 065
  5. AVONEX [Suspect]
     Active Substance: INTERFERON BETA-1A
     Indication: MULTIPLE SCLEROSIS
     Route: 030
     Dates: end: 2016

REACTIONS (6)
  - Temperature intolerance [Not Recovered/Not Resolved]
  - Somatic symptom disorder [Unknown]
  - Multiple sclerosis [Not Recovered/Not Resolved]
  - Multiple sclerosis relapse [Unknown]
  - Fall [Recovered/Resolved]
  - Musculoskeletal disorder [Not Recovered/Not Resolved]
